FAERS Safety Report 9551083 (Version 1)
Quarter: 2013Q3

REPORT INFORMATION
  Report Type: Spontaneous
  Country: DK (occurrence: DK)
  Receive Date: 20130925
  Receipt Date: 20130925
  Transmission Date: 20140515
  Serious: Yes (Hospitalization)
  Sender: FDA-Public Use
  Company Number: DK-009507513-1309DNK007739

PATIENT
  Age: 63 Year
  Sex: Female
  Weight: 60 kg

DRUGS (7)
  1. FOSAMAX UGETABLET [Suspect]
     Indication: OSTEOPOROSIS
     Dosage: STRENGTH: 70 MG, 1 TABLET WEEKLY
     Route: 048
     Dates: start: 20031112, end: 201212
  2. ALENDRONATE SODIUM [Suspect]
     Indication: OSTEOPOROSIS
     Dosage: UNK
     Route: 048
  3. CENTYL MITE WITH POTASSIUM CHLORIDE [Concomitant]
     Indication: HYPERTENSION
  4. CRESTOR [Concomitant]
     Indication: HYPERCHOLESTEROLAEMIA
  5. PANODIL [Concomitant]
     Indication: PAIN
  6. VAGIFEM [Concomitant]
     Indication: MENOPAUSAL SYMPTOMS
  7. CALCICHEW [Concomitant]

REACTIONS (3)
  - Stress fracture [Recovered/Resolved]
  - Bone pain [Unknown]
  - Stress fracture [Unknown]
